FAERS Safety Report 22133387 (Version 1)
Quarter: 2023Q1

REPORT INFORMATION
  Report Type: Spontaneous
  Country: IT (occurrence: None)
  Receive Date: 20230324
  Receipt Date: 20230324
  Transmission Date: 20230418
  Serious: Yes (Hospitalization)
  Sender: FDA-Public Use
  Company Number: 2023A067372

PATIENT
  Sex: Female

DRUGS (1)
  1. EVUSHELD [Suspect]
     Active Substance: CILGAVIMAB\TIXAGEVIMAB
     Route: 030

REACTIONS (3)
  - Infection [Unknown]
  - COVID-19 [Unknown]
  - Pneumonia [Unknown]

NARRATIVE: CASE EVENT DATE: 20230301
